FAERS Safety Report 8281244-8 (Version None)
Quarter: 2012Q2

REPORT INFORMATION
  Report Type: 
  Country: None (occurrence: None)
  Receive Date: 20120413
  Receipt Date: 20120404
  Transmission Date: 20120825
  Serious: Yes (Other)
  Sender: FDA-Public Use
  Company Number: US-AMGEN-USASP2012021475

PATIENT
  Age: 96 Year
  Sex: Female

DRUGS (13)
  1. LASIX [Concomitant]
     Dosage: UNK MG, UNK
  2. ATIVAN [Concomitant]
     Dosage: UNK MG, UNK
  3. ASPIRIN [Concomitant]
     Dosage: UNK
  4. TYLENOL (CAPLET) [Concomitant]
  5. LIPITOR [Concomitant]
     Dosage: UNK MG, UNK
  6. FOLBIC [Concomitant]
     Dosage: UNK
  7. PROLIA [Suspect]
     Indication: OSTEOPOROSIS POSTMENOPAUSAL
     Dates: start: 20100805
  8. ZIAC [Concomitant]
     Dosage: UNK MG, UNK
  9. CARAFATE [Concomitant]
     Dosage: 012 ML, UNK
  10. SYNTHROID [Concomitant]
     Dosage: 004 MUG, UNK
  11. EYEVITE [Concomitant]
     Dosage: UNK
  12. CITRACAL                           /00751520/ [Concomitant]
     Dosage: UNK
  13. MULTIVITAMIN                       /00097801/ [Concomitant]

REACTIONS (1)
  - METASTASES TO BONE [None]
